FAERS Safety Report 15592762 (Version 1)
Quarter: 2018Q4

REPORT INFORMATION
  Report Type: Spontaneous
  Country: US (occurrence: US)
  Receive Date: 20181106
  Receipt Date: 20181106
  Transmission Date: 20190205
  Serious: No
  Sender: FDA-Public Use
  Company Number: US-PFIZER INC-2018445155

PATIENT
  Age: 61 Year
  Sex: Female

DRUGS (11)
  1. CEFDINIR. [Concomitant]
     Active Substance: CEFDINIR
     Dosage: 300 MG, UNK
  2. LYRICA [Suspect]
     Active Substance: PREGABALIN
     Indication: PAIN
  3. BACLOFEN. [Concomitant]
     Active Substance: BACLOFEN
     Dosage: 10 MG, UNK
  4. LYRICA [Suspect]
     Active Substance: PREGABALIN
     Indication: NECK PAIN
  5. OMEPRAZOLE. [Concomitant]
     Active Substance: OMEPRAZOLE
     Dosage: 20 MG, UNK
  6. MELOXICAM. [Concomitant]
     Active Substance: MELOXICAM
     Dosage: 7.5 MG, UNK
  7. LISINOPRIL AND HYDROCHLOROTHIAZIDE [Concomitant]
     Active Substance: HYDROCHLOROTHIAZIDE\LISINOPRIL
     Dosage: UNK [LISINOPRIL 10MG/ HYDROCHLOROTHIAZIDE 12.5MG]
  8. OSPHENA [Concomitant]
     Active Substance: OSPEMIFENE
     Dosage: 60 MG, UNK
  9. LYRICA [Suspect]
     Active Substance: PREGABALIN
     Indication: FIBROMYALGIA
     Dosage: 225 MG, DAILY (75 MG IN AM AND 150 MG AT HS)
     Route: 048
  10. LYRICA [Suspect]
     Active Substance: PREGABALIN
     Indication: BACK PAIN
  11. ASPIRIN EC [Concomitant]
     Active Substance: ASPIRIN
     Dosage: 81 MG, UNK

REACTIONS (4)
  - Gastrooesophageal reflux disease [Unknown]
  - Nausea [Unknown]
  - Insomnia [Unknown]
  - Fatigue [Unknown]
